FAERS Safety Report 5262774-X (Version None)
Quarter: 2007Q1

REPORT INFORMATION
  Report Type: 
  Country: None (occurrence: None)
  Receive Date: 20070312
  Receipt Date: 20070308
  Transmission Date: 20070707
  Serious: Yes (Other)
  Sender: FDA-Public Use
  Company Number: US-GLAXOSMITHKLINE-A0642472A

PATIENT
  Age: 68 Year
  Sex: Male

DRUGS (11)
  1. ADVAIR DISKUS 100/50 [Suspect]
     Indication: ASTHMA
     Dosage: 1PUFF TWICE PER DAY
     Route: 055
     Dates: start: 20061101
  2. MULTI-VITAMIN [Concomitant]
  3. PREVACID [Concomitant]
  4. AVALIDE [Concomitant]
  5. SIMVASTATIN [Concomitant]
  6. ASPIRIN [Concomitant]
  7. DILANTIN [Concomitant]
  8. PILOCARPINE [Concomitant]
  9. DOCUSATE SODIUM [Concomitant]
  10. SINGULAIR [Concomitant]
  11. SPIRIVA [Concomitant]

REACTIONS (4)
  - OEDEMA PERIPHERAL [None]
  - PROSTATE CANCER [None]
  - SWELLING FACE [None]
  - THROAT CANCER [None]
